FAERS Safety Report 5951060-8 (Version None)
Quarter: 2008Q4

REPORT INFORMATION
  Report Type: 
  Country: None (occurrence: None)
  Receive Date: 20081112
  Receipt Date: 20081112
  Transmission Date: 20090506
  Serious: No
  Sender: FDA-Public Use
  Company Number: None

PATIENT

DRUGS (1)
  1. CIALIS [Suspect]
     Dosage: 5 TO 10 MG

REACTIONS (3)
  - OPTIC ISCHAEMIC NEUROPATHY [None]
  - SUDDEN VISUAL LOSS [None]
  - VISUAL FIELD DEFECT [None]
